FAERS Safety Report 7744323-7 (Version None)
Quarter: 2011Q3

REPORT INFORMATION
  Report Type: 
  Country: None (occurrence: None)
  Receive Date: 20110912
  Receipt Date: 20110901
  Transmission Date: 20111222
  Serious: Yes (Hospitalization)
  Sender: FDA-Public Use
  Company Number: US-JNJFOC-20110902043

PATIENT
  Sex: Male
  Weight: 104.33 kg

DRUGS (2)
  1. METFFORMIN HYDROCHLORIDE [Concomitant]
     Indication: DIABETES MELLITUS
     Route: 048
  2. SIMPONI [Suspect]
     Indication: ARTHRITIS
     Route: 058

REACTIONS (3)
  - ARTHROPATHY [None]
  - BLOOD CHOLESTEROL INCREASED [None]
  - ADVERSE EVENT [None]
